FAERS Safety Report 9414687 (Version 1)
Quarter: 2013Q3

REPORT INFORMATION
  Report Type: Spontaneous
  Country: US (occurrence: US)
  Receive Date: 20130723
  Receipt Date: 20130723
  Transmission Date: 20140515
  Serious: Yes (Hospitalization, Other)
  Sender: FDA-Public Use
  Company Number: US-BAXTER-2013BAX026155

PATIENT
  Age: 61 Year
  Sex: Male

DRUGS (1)
  1. DIANEAL LOW CALCIUM [Suspect]
     Indication: PERITONEAL DIALYSIS
     Route: 033

REACTIONS (3)
  - Lung neoplasm malignant [Not Recovered/Not Resolved]
  - Peripheral arterial occlusive disease [Recovering/Resolving]
  - Cyanosis [Recovering/Resolving]
